FAERS Safety Report 7679847-4 (Version None)
Quarter: 2011Q3

REPORT INFORMATION
  Report Type: 
  Country: None (occurrence: None)
  Receive Date: 20110809
  Receipt Date: 20110801
  Transmission Date: 20111222
  Serious: Yes (Hospitalization, Other)
  Sender: FDA-Public Use
  Company Number: 2010SP051441

PATIENT
  Age: 36 Year
  Sex: Female
  Weight: 61.2356 kg

DRUGS (1)
  1. NUVARING [Suspect]
     Indication: CONTRACEPTION
     Dosage: VAG
     Route: 067
     Dates: start: 20070101, end: 20081020

REACTIONS (27)
  - ATELECTASIS [None]
  - FIBRIN D DIMER INCREASED [None]
  - DEEP VEIN THROMBOSIS [None]
  - CONSTIPATION [None]
  - INTERNATIONAL NORMALISED RATIO INCREASED [None]
  - FATIGUE [None]
  - DEPRESSION [None]
  - MIGRAINE [None]
  - PLEURISY [None]
  - MULTIPLE INJURIES [None]
  - COUGH [None]
  - PANIC ATTACK [None]
  - PAIN IN EXTREMITY [None]
  - LOBAR PNEUMONIA [None]
  - DEVICE DIFFICULT TO USE [None]
  - PULMONARY EMBOLISM [None]
  - FAMILY STRESS [None]
  - PULMONARY THROMBOSIS [None]
  - ANXIETY [None]
  - UTERINE CERVIX STENOSIS [None]
  - PLEURAL EFFUSION [None]
  - PULMONARY FIBROSIS [None]
  - PLEURITIC PAIN [None]
  - RALES [None]
  - PULMONARY INFARCTION [None]
  - LUNG INFILTRATION [None]
  - JOINT DISLOCATION [None]
